FAERS Safety Report 15614297 (Version 1)
Quarter: 2018Q4

REPORT INFORMATION
  Report Type: Spontaneous
  Country: US (occurrence: US)
  Receive Date: 20181113
  Receipt Date: 20181113
  Transmission Date: 20190205
  Serious: No
  Sender: FDA-Public Use
  Company Number: US-MIST-TIR-2018-0840

PATIENT
  Age: 47 Year
  Sex: Female
  Weight: 39.04 kg

DRUGS (2)
  1. SYNTHROID [Concomitant]
     Active Substance: LEVOTHYROXINE SODIUM
     Indication: AUTOIMMUNE THYROIDITIS
     Dosage: ONE AND ONE HALF 75MCG TABLETS DAILY
     Route: 048
  2. TIROSINT [Suspect]
     Active Substance: LEVOTHYROXINE SODIUM
     Indication: AUTOIMMUNE THYROIDITIS
     Dosage: 50MCG DAILY
     Route: 048
     Dates: start: 20180804, end: 20180805

REACTIONS (14)
  - Visual impairment [Recovered/Resolved]
  - Dysarthria [Recovered/Resolved]
  - Palpitations [Recovered/Resolved]
  - Skin texture abnormal [Recovered/Resolved]
  - Autoscopy [Recovered/Resolved]
  - Feeling abnormal [Recovered/Resolved]
  - Dyspnoea [Recovered/Resolved]
  - Hypothyroidism [None]
  - Hypoaesthesia [Recovered/Resolved]
  - Sensory loss [Unknown]
  - Anxiety [None]
  - Dizziness [Recovered/Resolved]
  - Panic attack [Recovered/Resolved]
  - Cold sweat [Recovered/Resolved]

NARRATIVE: CASE EVENT DATE: 20180804
